FAERS Safety Report 5570428-5 (Version None)
Quarter: 2007Q4

REPORT INFORMATION
  Report Type: 
  Country: None (occurrence: None)
  Receive Date: 20071221
  Receipt Date: 20071212
  Transmission Date: 20080405
  Serious: Yes (Hospitalization, Disabling)
  Sender: FDA-Public Use
  Company Number: PHFR2007GB03603

PATIENT
  Age: 68 Year
  Sex: Male

DRUGS (11)
  1. ZOMETA [Suspect]
     Dosage: 4 MG
     Route: 042
     Dates: start: 20071130
  2. AMITRIPTLINE HCL [Concomitant]
     Dosage: 40 MG, QD
     Route: 048
  3. CARDICOR [Concomitant]
     Dosage: 1.25 MG, QD
     Route: 048
  4. CRESTOR [Concomitant]
     Dosage: 20 MG, QD
     Route: 048
  5. GABAPENTIN [Concomitant]
     Dosage: 1 MG, QD
     Route: 048
     Dates: start: 20071129
  6. GABAPENTIN [Concomitant]
     Dosage: 300 MG, TID
     Route: 048
  7. KETAMINE HCL [Concomitant]
     Dosage: 45 MG, QID
     Route: 048
     Dates: start: 20071105
  8. OXYCONTIN [Concomitant]
     Dosage: 40 MG, BID
     Route: 048
     Dates: start: 20071022
  9. OXYNORM [Concomitant]
     Dosage: 40 MG, PRN
     Route: 048
     Dates: start: 20071129
  10. ACETAMINOPHEN [Concomitant]
     Dosage: 1 G, QID
     Route: 048
  11. PLAVIX [Concomitant]
     Dosage: 75 MG, QD
     Route: 048

REACTIONS (2)
  - PYREXIA [None]
  - TACHYCARDIA [None]
